FAERS Safety Report 5302565-4 (Version None)
Quarter: 2007Q1

REPORT INFORMATION
  Report Type: 
  Country: None (occurrence: None)
  Receive Date: 20070201
  Receipt Date: 20061215
  Transmission Date: 20070707
  Serious: No
  Sender: FDA-Public Use
  Company Number: 2006PV027026

PATIENT
  Age: 64 Year
  Sex: Male
  Weight: 75.7507 kg

DRUGS (4)
  1. BYETTA [Suspect]
     Indication: DIABETES MELLITUS NON-INSULIN-DEPENDENT
     Dosage: SEE IMAGE
     Route: 058
     Dates: start: 20061018, end: 20061114
  2. BYETTA [Suspect]
     Indication: DIABETES MELLITUS NON-INSULIN-DEPENDENT
     Dosage: SEE IMAGE
     Route: 058
     Dates: start: 20061115
  3. METFORMIN HCL [Concomitant]
  4. STEROID INJECTIONS [Concomitant]

REACTIONS (4)
  - BLOOD GLUCOSE INCREASED [None]
  - DYSGEUSIA [None]
  - PAROSMIA [None]
  - WEIGHT INCREASED [None]
